FAERS Safety Report 12837388 (Version 2)
Quarter: 2016Q4

REPORT INFORMATION
  Report Type: Spontaneous
  Country: US (occurrence: US)
  Receive Date: 20161011
  Receipt Date: 20161207
  Transmission Date: 20170207
  Serious: No
  Sender: FDA-Public Use
  Company Number: US-TEVA-700859USA

PATIENT
  Sex: Female

DRUGS (7)
  1. VITAMIN D3 [Concomitant]
     Active Substance: CHOLECALCIFEROL
  2. COPAXONE [Suspect]
     Active Substance: GLATIRAMER ACETATE
     Indication: MULTIPLE SCLEROSIS
     Route: 058
     Dates: start: 201403
  3. MULTIVITAMINS/WOMENS MULTIVITS [Concomitant]
  4. TRINESSA [Concomitant]
     Active Substance: ETHINYL ESTRADIOL\NORGESTIMATE
  5. ZYRTEC [Concomitant]
     Active Substance: CETIRIZINE HYDROCHLORIDE
  6. CANNABIS HERBAL EXPEC [Concomitant]
  7. VITAMIN D [Concomitant]
     Active Substance: CHOLECALCIFEROL

REACTIONS (7)
  - Injection site swelling [Unknown]
  - Injection site pain [Unknown]
  - Injection site erythema [Unknown]
  - Injection site mass [Unknown]
  - Injection site bruising [Unknown]
  - Injection site pruritus [Unknown]
  - Injection site reaction [Unknown]

NARRATIVE: CASE EVENT DATE: 2016
